FAERS Safety Report 23303497 (Version 1)
Quarter: 2023Q4

REPORT INFORMATION
  Report Type: Spontaneous
  Country: SE (occurrence: SE)
  Receive Date: 20231215
  Receipt Date: 20231215
  Transmission Date: 20240110
  Serious: Yes (Hospitalization)
  Sender: FDA-Public Use
  Company Number: None

PATIENT
  Age: 85 Year

DRUGS (14)
  1. LOSARTAN [Suspect]
     Active Substance: LOSARTAN
     Indication: Hypertension
     Route: 065
     Dates: start: 20181011, end: 20231103
  2. ASACOL [Concomitant]
     Active Substance: MESALAMINE
     Indication: Product used for unknown indication
     Dates: start: 20231011
  3. EDOXABAN TOSYLATE [Concomitant]
     Active Substance: EDOXABAN TOSYLATE
     Indication: Product used for unknown indication
     Dates: start: 20221006
  4. LOCOBASE LPL [Concomitant]
     Indication: Product used for unknown indication
     Dosage: 1-2 TIMES DAILY, STRENGTH 200 MG/G+45 MG/G
     Dates: start: 20231030
  5. FUROSEMIDE [Concomitant]
     Active Substance: FUROSEMIDE
     Indication: Product used for unknown indication
     Dates: start: 20230930
  6. RETACRIT [Concomitant]
     Active Substance: EPOETIN ALFA-EPBX
     Indication: Product used for unknown indication
     Dates: start: 20190520
  7. Folsyra Vitabalans [Concomitant]
     Indication: Product used for unknown indication
     Dates: start: 20231023
  8. OMEPRAZOLE [Concomitant]
     Active Substance: OMEPRAZOLE
     Indication: Product used for unknown indication
     Dosage: TIME INTERVAL: 1 AS NECESSARY
     Dates: start: 20231011
  9. HYDROCORTISONE\MICONAZOLE NITRATE [Concomitant]
     Active Substance: HYDROCORTISONE\MICONAZOLE NITRATE
     Indication: Product used for unknown indication
     Dosage: 1 APPLICATION 2 TIMES DAILY
     Dates: start: 20230727
  10. MULTAQ [Concomitant]
     Active Substance: DRONEDARONE
     Indication: Product used for unknown indication
     Dates: start: 20221005
  11. DAPAGLIFLOZIN [Concomitant]
     Active Substance: DAPAGLIFLOZIN
     Indication: Product used for unknown indication
     Dates: start: 20221003
  12. METHOTREXATE [Concomitant]
     Active Substance: METHOTREXATE
     Indication: Product used for unknown indication
     Dates: start: 20220521
  13. SIMVASTATIN [Concomitant]
     Active Substance: SIMVASTATIN
     Indication: Product used for unknown indication
     Dates: start: 20170407
  14. INSPRA [Suspect]
     Active Substance: EPLERENONE
     Indication: Diuretic therapy
     Route: 065
     Dates: start: 20180123, end: 20231103

REACTIONS (2)
  - Acute kidney injury [Unknown]
  - Chest pain [Unknown]

NARRATIVE: CASE EVENT DATE: 20231101
